FAERS Safety Report 18182298 (Version 2)
Quarter: 2020Q3

REPORT INFORMATION
  Report Type: Report from Study
  Country: BR (occurrence: BR)
  Receive Date: 20200821
  Receipt Date: 20200904
  Transmission Date: 20201103
  Serious: Yes (Other)
  Sender: FDA-Public Use
  Company Number: NVSC2020BR228542

PATIENT
  Sex: Female
  Weight: 35 kg

DRUGS (8)
  1. ALENIA [Concomitant]
     Indication: PRODUCT USED FOR UNKNOWN INDICATION
     Dosage: UNK
     Route: 065
  2. BEROTEC [Concomitant]
     Active Substance: FENOTEROL HYDROBROMIDE
     Indication: EMPHYSEMA
     Dosage: 05 DRP, TID, STARTS MANY YEARS AGO
     Route: 055
  3. DIAZEPAM. [Concomitant]
     Active Substance: DIAZEPAM
     Indication: ANXIETY
     Dosage: 1 DF, QD, STARTS AT 15 YEARS OLD
     Route: 048
  4. FORASEQ [Suspect]
     Active Substance: BUDESONIDE\FORMOTEROL FUMARATE
     Indication: EMPHYSEMA
     Dosage: 12/400
     Route: 065
  5. TEUTOCILIN [Concomitant]
     Indication: EMPHYSEMA
     Dosage: 04 DF, QD, STARTS MANY YEARS AGO, DROP
     Route: 048
  6. ISORDIL [Concomitant]
     Active Substance: ISOSORBIDE DINITRATE
     Indication: CARDIAC DISORDER
     Dosage: 03 DF, QD, STARTS MANY YEARS AGO
     Route: 048
  7. FORASEQ [Suspect]
     Active Substance: BUDESONIDE\FORMOTEROL FUMARATE
     Dosage: 1 DF, QD, STARTS 1 MONTH AGO
     Route: 055
  8. ATROVENT [Concomitant]
     Active Substance: IPRATROPIUM BROMIDE
     Indication: EMPHYSEMA
     Dosage: 20 DRP, TID, STARTS MANY YEARS AGO
     Route: 055

REACTIONS (6)
  - Lung disorder [Unknown]
  - Cough [Unknown]
  - Skin atrophy [Unknown]
  - Visual impairment [Unknown]
  - Emphysema [Unknown]
  - Product use in unapproved indication [Unknown]
